FAERS Safety Report 24142911 (Version 1)
Quarter: 2024Q3

REPORT INFORMATION
  Report Type: Spontaneous
  Country: US (occurrence: None)
  Receive Date: 20240726
  Receipt Date: 20240726
  Transmission Date: 20241017
  Serious: No
  Sender: Public
  Company Number: None

PATIENT
  Age: 55 Year
  Sex: Female

DRUGS (1)
  1. OTEZLA [Suspect]
     Active Substance: APREMILAST
     Indication: Psoriasis
     Dosage: 30 MG TWICE A DAY ORAL
     Route: 048

REACTIONS (3)
  - Migraine [None]
  - Gastrointestinal disorder [None]
  - Psoriasis [None]

NARRATIVE: CASE EVENT DATE: 20240724
